APPROVED DRUG PRODUCT: ALBUTEROL SULFATE
Active Ingredient: ALBUTEROL SULFATE
Strength: EQ 4MG BASE
Dosage Form/Route: TABLET;ORAL
Application: A072967 | Product #001
Applicant: COPLEY PHARMACEUTICAL INC
Approved: Nov 22, 1991 | RLD: No | RS: No | Type: DISCN